FAERS Safety Report 7594516-7 (Version None)
Quarter: 2011Q2

REPORT INFORMATION
  Report Type: 
  Country: None (occurrence: None)
  Receive Date: 20110628
  Receipt Date: 20110614
  Transmission Date: 20111010
  Serious: Yes (Disabling, Other)
  Sender: FDA-Public Use
  Company Number: 2010MA001661

PATIENT
  Age: 77 Year
  Sex: Female
  Weight: 66.6788 kg

DRUGS (42)
  1. DONNATAL [Concomitant]
  2. NAPROXEN (ALEVE) [Concomitant]
  3. CYMBALTA [Concomitant]
  4. BACTRIM [Concomitant]
  5. OMEPRAZOLE [Concomitant]
  6. LODINE [Concomitant]
  7. LYRICA [Concomitant]
  8. CATAPRES [Concomitant]
  9. RESTORIL [Concomitant]
  10. LAXATIVES [Concomitant]
  11. VERAPAMIL [Concomitant]
  12. SKELAXIN [Concomitant]
  13. ULTRAM [Concomitant]
  14. ARANESP [Concomitant]
  15. ULTRACET [Concomitant]
  16. LORTAB [Concomitant]
  17. LASIX [Concomitant]
  18. NEXIUM [Concomitant]
  19. NEURONTIN [Concomitant]
  20. DARVOCET-N 50 [Concomitant]
  21. LEVAQUIN [Concomitant]
  22. KLONOPIN [Concomitant]
  23. RISPERDAL [Concomitant]
  24. VALIUM [Concomitant]
  25. ACTONEL [Concomitant]
  26. MAALOX [Concomitant]
  27. PROTONIX [Concomitant]
  28. VANTAN [Concomitant]
  29. GABAPENTIN [Concomitant]
  30. TYLENOL-500 [Concomitant]
  31. CEFTIN [Concomitant]
  32. VITAMIN TAB [Concomitant]
  33. CALCIUM CARBONATE [Concomitant]
  34. DIFLUCAN [Concomitant]
  35. MACROBID [Concomitant]
  36. TRAMADOL HCL [Concomitant]
  37. CARAFATE [Concomitant]
  38. METOCLOPRAMIDE [Suspect]
     Dosage: 10 MG;PO
     Route: 048
  39. PHENERGAN HCL [Concomitant]
  40. DOXYCYCLINE [Concomitant]
  41. ARICEPT [Concomitant]
  42. AMBIEN [Concomitant]

REACTIONS (52)
  - TONGUE BITING [None]
  - RENAL FAILURE CHRONIC [None]
  - HOSTILITY [None]
  - WOUND DEHISCENCE [None]
  - DYSKINESIA [None]
  - ABDOMINAL PAIN UPPER [None]
  - DYSPNOEA [None]
  - MICROCYTIC ANAEMIA [None]
  - HIP ARTHROPLASTY [None]
  - CYSTITIS [None]
  - ILEUS [None]
  - OSTEOARTHRITIS [None]
  - ANTINUCLEAR ANTIBODY POSITIVE [None]
  - EXCESSIVE EYE BLINKING [None]
  - DEPRESSION [None]
  - ATTENTION-SEEKING BEHAVIOUR [None]
  - URINARY TRACT INFECTION PSEUDOMONAL [None]
  - BARRETT'S OESOPHAGUS [None]
  - ERYTHEMA [None]
  - EYE PRURITUS [None]
  - NEPHROTIC SYNDROME [None]
  - HYPOTENSION [None]
  - POST PROCEDURAL HAEMORRHAGE [None]
  - PARANOIA [None]
  - OESOPHAGITIS [None]
  - BLOOD GLUCOSE INCREASED [None]
  - AKATHISIA [None]
  - RENAL FAILURE [None]
  - HAEMATURIA [None]
  - DYSPHAGIA [None]
  - ORAL DISORDER [None]
  - REFUSAL OF TREATMENT BY PATIENT [None]
  - NEUROGENIC BLADDER [None]
  - MYELODYSPLASTIC SYNDROME [None]
  - WOUND HAEMORRHAGE [None]
  - HYDROURETER [None]
  - TARDIVE DYSKINESIA [None]
  - NAUSEA [None]
  - URINARY TRACT INFECTION [None]
  - ANXIETY [None]
  - DROOLING [None]
  - DYSPHEMIA [None]
  - DYSARTHRIA [None]
  - DIABETIC NEUROPATHY [None]
  - DRY MOUTH [None]
  - ARTHRALGIA [None]
  - PAIN IN EXTREMITY [None]
  - AGITATION [None]
  - URINARY RETENTION [None]
  - TREMOR [None]
  - ABDOMINAL PAIN [None]
  - ASTHENIA [None]
